FAERS Safety Report 5368950-X (Version None)
Quarter: 2007Q2

REPORT INFORMATION
  Report Type: 
  Country: None (occurrence: None)
  Receive Date: 20070625
  Receipt Date: 20061116
  Transmission Date: 20071010
  Serious: No
  Sender: FDA-Public Use
  Company Number: US-ASTRAZENECA-2006UW24682

PATIENT
  Age: 52 Year
  Sex: Female
  Weight: 88.9 kg

DRUGS (3)
  1. CRESTOR [Suspect]
     Route: 048
     Dates: start: 20050101
  2. CRESTOR [Suspect]
     Route: 048
     Dates: start: 20060101
  3. CRESTOR [Suspect]
     Route: 048
     Dates: start: 20060101

REACTIONS (2)
  - DEHYDRATION [None]
  - MUSCLE SPASMS [None]
